FAERS Safety Report 7244915-8 (Version None)
Quarter: 2011Q1

REPORT INFORMATION
  Report Type: 
  Country: None (occurrence: None)
  Receive Date: 20110126
  Receipt Date: 20110119
  Transmission Date: 20110831
  Serious: Yes (Other)
  Sender: FDA-Public Use
  Company Number: US-ELI_LILLY_AND_COMPANY-US201101004936

PATIENT
  Sex: Female

DRUGS (2)
  1. DESMOPRESSIN ACETATE [Concomitant]
  2. HUMATROPE [Suspect]
     Indication: HYPOPITUITARISM
     Dosage: 0.3 MG, DAILY (1/D)

REACTIONS (13)
  - CEREBROVASCULAR ACCIDENT [None]
  - DRUG DOSE OMISSION [None]
  - ARTHRITIS [None]
  - BURSITIS [None]
  - BLOOD PRESSURE DECREASED [None]
  - LABORATORY TEST ABNORMAL [None]
  - GENERAL PHYSICAL HEALTH DETERIORATION [None]
  - MIGRAINE [None]
  - INFLUENZA [None]
  - SINUSITIS [None]
  - BRONCHITIS [None]
  - INADEQUATE DIET [None]
  - STRESS [None]
